FAERS Safety Report 23530769 (Version 1)
Quarter: 2024Q1

REPORT INFORMATION
  Report Type: Spontaneous
  Country: KR (occurrence: KR)
  Receive Date: 20240216
  Receipt Date: 20240216
  Transmission Date: 20240410
  Serious: Yes (Hospitalization, Other)
  Sender: FDA-Public Use
  Company Number: KR-Accord-406995

PATIENT
  Age: 73 Year
  Sex: Male

DRUGS (9)
  1. FLUOROURACIL [Suspect]
     Active Substance: FLUOROURACIL
     Indication: Colorectal cancer
     Dosage: SOLUTION, DAY 1, Q14D
     Route: 042
     Dates: start: 20231208, end: 20240112
  2. IRINOTECAN [Suspect]
     Active Substance: IRINOTECAN
     Indication: Colorectal cancer
     Dosage: SOLUTION, DAY 1, Q14D
     Route: 042
     Dates: start: 20231208, end: 20240112
  3. LEUCOVORIN [Suspect]
     Active Substance: LEUCOVORIN\LEUCOVORIN CALCIUM
     Indication: Colorectal cancer
     Dosage: DAY 1, Q14D, SOLUTION
     Route: 042
     Dates: start: 20231208, end: 20240112
  4. BEVACIZUMAB [Concomitant]
     Active Substance: BEVACIZUMAB
     Indication: Colorectal cancer
     Dosage: SOLUTION, DAY 1, Q14D
     Route: 042
     Dates: start: 20231208, end: 20231208
  5. CYMBALTA [Concomitant]
     Active Substance: DULOXETINE HYDROCHLORIDE
  6. LEVOCLOPERASTINE FENDIZOATE [Concomitant]
     Active Substance: LEVOCLOPERASTINE FENDIZOATE
  7. MEGACE [Concomitant]
     Active Substance: MEGESTROL ACETATE
  8. PREGABALIN [Concomitant]
     Active Substance: PREGABALIN
  9. SURFOLASE [Concomitant]

REACTIONS (1)
  - Febrile neutropenia [Not Recovered/Not Resolved]

NARRATIVE: CASE EVENT DATE: 20240123
